FAERS Safety Report 5115021-3 (Version None)
Quarter: 2006Q3

REPORT INFORMATION
  Report Type: 
  Country: None (occurrence: None)
  Receive Date: 20060925
  Receipt Date: 20060925
  Transmission Date: 20061208
  Serious: Yes (Other)
  Sender: FDA-Public Use
  Company Number: None

PATIENT

DRUGS (2)
  1. AMOXICILLIN [Suspect]
     Dosage: 500 MG   EVERY 6 HOURS   PO
     Route: 048
  2. NEURONTIN [Suspect]
     Dosage: 300 MG   EVERY 6 HOURS   PO
     Route: 048

REACTIONS (3)
  - DRUG DISPENSING ERROR [None]
  - INTERCEPTED DRUG ADMINISTRATION ERROR [None]
  - MEDICATION ERROR [None]
